FAERS Safety Report 7944474 (Version 3)
Quarter: 2015Q4

REPORT INFORMATION
  Report Type: Spontaneous
  Country: US (occurrence: US)
  Receive Date: 20110513
  Receipt Date: 20151218
  Transmission Date: 20160305
  Serious: Yes (Other)
  Sender: FDA-Public Use
  Company Number: US-BAYER-2011-040485

PATIENT
  Age: 22 Year
  Sex: Female
  Weight: 62 kg

DRUGS (2)
  1. YASMIN [Suspect]
     Active Substance: DROSPIRENONE\ETHINYL ESTRADIOL
     Indication: MIGRAINE PROPHYLAXIS
  2. YASMIN [Suspect]
     Active Substance: DROSPIRENONE\ETHINYL ESTRADIOL
     Indication: CONTRACEPTION
     Dosage: UNK
     Dates: start: 20021021, end: 20070404

REACTIONS (11)
  - Hypoaesthesia [None]
  - Paraesthesia [None]
  - Injury [None]
  - Pain [None]
  - Cerebral infarction [None]
  - Hypoaesthesia oral [None]
  - General physical health deterioration [None]
  - Emotional distress [None]
  - Anxiety [None]
  - Embolism arterial [None]
  - Muscular weakness [None]

NARRATIVE: CASE EVENT DATE: 20070404
